FAERS Safety Report 24292301 (Version 1)
Quarter: 2024Q3

REPORT INFORMATION
  Report Type: Spontaneous
  Country: US (occurrence: US)
  Receive Date: 20240906
  Receipt Date: 20240906
  Transmission Date: 20241016
  Serious: No
  Sender: PFIZER
  Company Number: US-PFIZER INC-202400250603

PATIENT
  Age: 78 Year
  Sex: Female
  Weight: 125.64 kg

DRUGS (1)
  1. ESTRING [Suspect]
     Active Substance: ESTRADIOL
     Dosage: UNK
     Dates: start: 202310

REACTIONS (3)
  - Illness [Unknown]
  - COVID-19 [Recovered/Resolved]
  - Drug hypersensitivity [Recovered/Resolved]
